FAERS Safety Report 4397139-6 (Version None)
Quarter: 2004Q3

REPORT INFORMATION
  Report Type: 
  Country: None (occurrence: None)
  Receive Date: 20040708
  Receipt Date: 20040625
  Transmission Date: 20050211
  Serious: Yes (Hospitalization)
  Sender: FDA-Public Use
  Company Number: 2004043335

PATIENT
  Age: 32 Year
  Sex: Male

DRUGS (1)
  1. DOXAZOSIN MESYLATE [Suspect]
     Indication: HYPERTENSION
     Dosage: 1 MG (1 IN 1 D), ORAL
     Route: 048
     Dates: start: 20040123, end: 20040326

REACTIONS (1)
  - LIVER DISORDER [None]
